FAERS Safety Report 8374250-6 (Version None)
Quarter: 2012Q2

REPORT INFORMATION
  Report Type: 
  Country: None (occurrence: None)
  Receive Date: 20120521
  Receipt Date: 20120514
  Transmission Date: 20120825
  Serious: Yes (Hospitalization)
  Sender: FDA-Public Use
  Company Number: US-MERCK-1205USA02623

PATIENT
  Age: 75 Year
  Sex: Female

DRUGS (13)
  1. VITAMINS (UNSPECIFIED) [Concomitant]
     Route: 065
  2. KLOR-CON [Concomitant]
     Route: 065
  3. JANUMET [Suspect]
     Indication: TYPE 2 DIABETES MELLITUS
     Route: 048
     Dates: start: 20110101, end: 20120101
  4. ASPIRIN [Concomitant]
     Route: 065
  5. FERRUMPOLA [Concomitant]
     Route: 065
  6. PRAVACHOL [Concomitant]
     Route: 065
  7. GLIPIZIDE [Concomitant]
     Route: 065
  8. FUROSEMIDE [Concomitant]
     Route: 065
  9. PRADAXA [Concomitant]
     Route: 065
  10. SOTALOL HYDROCHLORIDE [Concomitant]
     Route: 065
  11. JANUVIA [Suspect]
     Indication: TYPE 2 DIABETES MELLITUS
     Route: 048
     Dates: start: 20120310, end: 20120509
  12. CYANOCOBALAMIN [Concomitant]
     Route: 065
  13. HYDRALAZINE [Concomitant]
     Route: 065

REACTIONS (2)
  - RENAL FAILURE ACUTE [None]
  - SWELLING [None]
